FAERS Safety Report 5296421-8 (Version None)
Quarter: 2007Q2

REPORT INFORMATION
  Report Type: 
  Country: None (occurrence: None)
  Receive Date: 20070413
  Receipt Date: 20070405
  Transmission Date: 20071010
  Serious: Yes (Other)
  Sender: FDA-Public Use
  Company Number: BR-ROCHE-492019

PATIENT
  Age: 17 Year
  Sex: Female

DRUGS (2)
  1. ISOTRETINOIN [Suspect]
     Indication: ACNE
     Route: 048
     Dates: start: 20070215
  2. CONTRACEPTIVE [Concomitant]
     Indication: CONTRACEPTION
     Route: 048

REACTIONS (3)
  - NO ADVERSE EFFECT [None]
  - PREGNANCY [None]
  - TREATMENT NONCOMPLIANCE [None]
